FAERS Safety Report 8973998 (Version 1)
Quarter: 2012Q4

REPORT INFORMATION
  Report Type: 
  Country: US (occurrence: US)
  Receive Date: 20121218
  Receipt Date: 20121218
  Transmission Date: 20130627
  Serious: No
  Sender: FDA-Public Use
  Company Number: US-BRISTOL-MYERS SQUIBB COMPANY-16837445

PATIENT
  Age: 23 Year
  Sex: Female

DRUGS (4)
  1. ABILIFY [Suspect]
     Indication: PERSONALITY DISORDER
     Dosage: Increased to 15mg.
Stop date: arround Mar2012 or Apr2012.
     Route: 048
     Dates: end: 2012
  2. ABILIFY [Suspect]
     Indication: AFFECTIVE DISORDER
     Dosage: Increased to 15mg.
Stop date: arround Mar2012 or Apr2012.
     Route: 048
     Dates: end: 2012
  3. ZOLOFT [Concomitant]
  4. WELLBUTRIN XL [Concomitant]

REACTIONS (3)
  - Anxiety [Recovered/Resolved]
  - Thinking abnormal [Recovered/Resolved]
  - Akathisia [Recovered/Resolved]
